FAERS Safety Report 6145950-3 (Version None)
Quarter: 2009Q2

REPORT INFORMATION
  Report Type: 
  Country: None (occurrence: None)
  Receive Date: 20090406
  Receipt Date: 20090406
  Transmission Date: 20091009
  Serious: Yes (Death, Life-Threatening, Hospitalization)
  Sender: FDA-Public Use
  Company Number: None

PATIENT
  Weight: 54.4316 kg

DRUGS (4)
  1. RESPERDAL CVS PHARMACY [Suspect]
     Indication: RENAL FAILURE
  2. REZULIN [Suspect]
     Indication: PANCREATIC CARCINOMA
  3. DOXEPIN HCL [Suspect]
  4. . [Concomitant]

REACTIONS (5)
  - BREAST CANCER [None]
  - BREAST MASS [None]
  - DIABETES MELLITUS [None]
  - DIALYSIS [None]
  - RENAL DISORDER [None]
